FAERS Safety Report 20720042 (Version 3)
Quarter: 2022Q2

REPORT INFORMATION
  Report Type: Report from Study
  Country: GR (occurrence: GR)
  Receive Date: 20220418
  Receipt Date: 20220519
  Transmission Date: 20220721
  Serious: Yes (Other)
  Sender: FDA-Public Use
  Company Number: GR-ABBVIE-22K-066-4359629-00

PATIENT
  Age: 75 Year
  Sex: Male
  Weight: 69 kg

DRUGS (3)
  1. CARBIDOPA\LEVODOPA [Suspect]
     Active Substance: CARBIDOPA\LEVODOPA
     Indication: Parkinson^s disease
     Dosage: MORNING DOSE: 7.8 ML; CONTINUOUS RATE:  1.7 ML/H; EXTRA DOSE: 1.0 ML
     Route: 050
     Dates: start: 20220404, end: 20220412
  2. CARBIDOPA\LEVODOPA [Suspect]
     Active Substance: CARBIDOPA\LEVODOPA
     Dosage: MORNING DOSE 10.8 ML; CONTINUOUS RATE 1.7 ML/H; EXTRA DOSE 1 ML
     Route: 050
     Dates: start: 20220516
  3. CARBIDOPA\LEVODOPA [Suspect]
     Active Substance: CARBIDOPA\LEVODOPA
     Route: 050

REACTIONS (5)
  - Large intestine polyp [Unknown]
  - Device issue [Unknown]
  - Corrosive gastritis [Recovered/Resolved]
  - Device dislocation [Unknown]
  - Duodenal ulcer [Recovered/Resolved]

NARRATIVE: CASE EVENT DATE: 20220101
